FAERS Safety Report 15261332 (Version 1)
Quarter: 2018Q3

REPORT INFORMATION
  Report Type: Spontaneous
  Country: US (occurrence: US)
  Receive Date: 20180809
  Receipt Date: 20180809
  Transmission Date: 20181010
  Serious: Yes (Other)
  Sender: FDA-Public Use
  Company Number: US-AMGEN-USASP2018108010

PATIENT
  Age: 60 Year
  Sex: Female

DRUGS (2)
  1. METHOTREXATE. [Concomitant]
     Active Substance: METHOTREXATE
     Indication: PSORIATIC ARTHROPATHY
     Dosage: UNK UNK, QWK (SWITCHED FROM INJECTION TO PILLS AND AGAIN BACK ON INJECTION)
     Route: 065
  2. ENBREL [Suspect]
     Active Substance: ETANERCEPT
     Indication: PSORIATIC ARTHROPATHY
     Dosage: 50 MG, QWK
     Route: 065
     Dates: start: 201606

REACTIONS (3)
  - Incorrect dose administered by device [Unknown]
  - Gait disturbance [Unknown]
  - Psoriatic arthropathy [Unknown]

NARRATIVE: CASE EVENT DATE: 2018
